FAERS Safety Report 4623779-2 (Version None)
Quarter: 2005Q1

REPORT INFORMATION
  Report Type: 
  Country: None (occurrence: None)
  Receive Date: 20050331
  Receipt Date: 20050330
  Transmission Date: 20050727
  Serious: Yes (Death, Hospitalization, Other)
  Sender: FDA-Public Use
  Company Number: US-BRISTOL-MYERS SQUIBB COMPANY-12914875

PATIENT
  Age: 77 Year
  Sex: Male

DRUGS (1)
  1. SERZONE [Suspect]
     Route: 048
     Dates: end: 20030306

REACTIONS (4)
  - BRAIN DAMAGE [None]
  - DEATH [None]
  - HEPATOCELLULAR DAMAGE [None]
  - SEPSIS [None]
